FAERS Safety Report 8156337-6 (Version None)
Quarter: 2012Q1

REPORT INFORMATION
  Report Type: 
  Country: None (occurrence: None)
  Receive Date: 20120222
  Receipt Date: 20120216
  Transmission Date: 20120608
  Serious: No
  Sender: FDA-Public Use
  Company Number: US-PFIZER INC-2012042959

PATIENT
  Sex: Male
  Weight: 53.968 kg

DRUGS (2)
  1. BENAZEPRIL [Concomitant]
     Indication: HYPERTENSION
     Dosage: 20 MG, DAILY
  2. LIPITOR [Suspect]
     Indication: BLOOD CHOLESTEROL INCREASED
     Dosage: 40 MG, DAILY
     Dates: start: 19980101

REACTIONS (2)
  - DRUG INTOLERANCE [None]
  - MULTI-ORGAN DISORDER [None]
